FAERS Safety Report 18649017 (Version 1)
Quarter: 2020Q4

REPORT INFORMATION
  Report Type: Other
  Country: US (occurrence: US)
  Receive Date: 20201222
  Receipt Date: 20201222
  Transmission Date: 20210114
  Serious: Yes (Other)
  Sender: FDA-Public Use
  Company Number: US-EMD SERONO-9122098

PATIENT
  Age: 39 Year
  Sex: Female
  Weight: 75 kg

DRUGS (10)
  1. MAVENCLAD [Suspect]
     Active Substance: CLADRIBINE
     Indication: RELAPSING-REMITTING MULTIPLE SCLEROSIS
     Dosage: YEAR ONE MONTH ONE THERAPY: TWO TABLETS ON DAYS 1 TO 2 AND ONE TABLET ON DAYS 3 TO 5.
     Route: 048
     Dates: start: 20190911
  2. MAVENCLAD [Suspect]
     Active Substance: CLADRIBINE
     Dosage: YEAR ONE MONTH TWO THERAPY: TWO TABLETS ON DAYS 1 TO 2 AND ONE TABLET ON DAYS 3 TO 5.
     Route: 048
     Dates: start: 20191010, end: 20191014
  3. XANAX [Concomitant]
     Active Substance: ALPRAZOLAM
     Indication: PRODUCT USED FOR UNKNOWN INDICATION
     Dosage: ONE TABLET OF 0.25 MG TOTAL BY MOUTH THREE TIMES DAILY AS NEEDED.
     Route: 048
  4. VITAMIN D3 [Concomitant]
     Active Substance: CHOLECALCIFEROL
     Indication: PRODUCT USED FOR UNKNOWN INDICATION
     Dosage: ONE CAPSULE (10000 UNITS) BY MOUTH ONE TIME DAILY. PATIENT WAS TAKING AT NIGHT TIME.
     Route: 048
  5. NIZORAL [Concomitant]
     Active Substance: KETOCONAZOLE
     Indication: SEBORRHOEIC DERMATITIS
     Dosage: APPLY TO THE SCALP TWO TO THREE TIMES WEEKLY, LET SIT FOR 5 MINUTES AND THEN WASH OUT.
  6. ALDARA [Concomitant]
     Active Substance: IMIQUIMOD
     Indication: PRODUCT USED FOR UNKNOWN INDICATION
     Dosage: AS OF 20 NOV 2019, THE PATIENT WAS NOT TAKING MEDICATION.
  7. DESOWEN [Concomitant]
     Active Substance: DESONIDE
     Indication: PRODUCT USED FOR UNKNOWN INDICATION
  8. NIZORAL [Concomitant]
     Active Substance: KETOCONAZOLE
     Indication: RASH
     Dosage: APPLY EXTERNALLY DAILY TO AFFECTED AREA FOR 2 WEEKS OR UNTIL RECOVERY. STOPPED SINCE 08 NOV 2019.
  9. MIRENA [Concomitant]
     Active Substance: LEVONORGESTREL
     Indication: INTRAUTERINE CONTRACEPTION
     Dosage: 52 MG,20 MCG/24 HOURS?TO BE ADMINISTER ONE DEVICE CONTINUOUSLY.
     Dates: start: 20181220
  10. PRILOSEC [Concomitant]
     Active Substance: OMEPRAZOLE MAGNESIUM
     Indication: PRODUCT USED FOR UNKNOWN INDICATION
     Dosage: DELAYED RELEASE CAPSULE
     Route: 048

REACTIONS (10)
  - Retinal exudates [Recovered/Resolved]
  - Fatigue [Unknown]
  - Aphthous ulcer [Recovered/Resolved]
  - Pain [Unknown]
  - White blood cell count decreased [Recovered/Resolved]
  - Platelet count decreased [Recovered/Resolved]
  - Lymphocyte count decreased [Recovered/Resolved]
  - Contusion [Recovered/Resolved]
  - Lymphadenopathy [Recovered/Resolved]
  - Off label use [Unknown]

NARRATIVE: CASE EVENT DATE: 201910
